FAERS Safety Report 25025506 (Version 1)
Quarter: 2025Q1

REPORT INFORMATION
  Report Type: Spontaneous
  Country: CN (occurrence: CN)
  Receive Date: 20250228
  Receipt Date: 20250228
  Transmission Date: 20250408
  Serious: Yes (Other)
  Sender: BEIGENE
  Company Number: CN-BEIGENE-BGN-2025-002799

PATIENT
  Age: 55 Year
  Weight: 46 kg

DRUGS (3)
  1. TISLELIZUMAB [Suspect]
     Active Substance: TISLELIZUMAB
     Indication: Pancreatic neoplasm
     Dosage: 200 MILLIGRAM, Q3WK
  2. GEMCITABINE HYDROCHLORIDE [Suspect]
     Active Substance: GEMCITABINE HYDROCHLORIDE
     Indication: Pancreatic neoplasm
  3. ERLOTINIB HYDROCHLORIDE [Concomitant]
     Active Substance: ERLOTINIB HYDROCHLORIDE
     Indication: Pancreatic neoplasm
     Dosage: 150 MILLIGRAM, QD

REACTIONS (2)
  - Myelosuppression [Not Recovered/Not Resolved]
  - Rash erythematous [Unknown]
